FAERS Safety Report 24666250 (Version 1)
Quarter: 2024Q4

REPORT INFORMATION
  Report Type: Spontaneous
  Country: US (occurrence: US)
  Receive Date: 20241126
  Receipt Date: 20241126
  Transmission Date: 20250115
  Serious: Yes (Other)
  Sender: IPSEN BIOPHARMACEUTICALS, INC.
  Company Number: US-IPSEN Group, Research and Development-2024-23744

PATIENT
  Age: 43 Year
  Sex: Male

DRUGS (1)
  1. TAZVERIK [Suspect]
     Active Substance: TAZEMETOSTAT HYDROBROMIDE
     Indication: Epithelioid sarcoma metastatic
     Route: 065

REACTIONS (5)
  - Renal impairment [Unknown]
  - Tubulointerstitial nephritis [Unknown]
  - Necrosis [Unknown]
  - Anaemia [Unknown]
  - Lymphadenopathy [Unknown]
